FAERS Safety Report 6819541-2 (Version None)
Quarter: 2010Q3

REPORT INFORMATION
  Report Type: 
  Country: None (occurrence: None)
  Receive Date: 20100707
  Receipt Date: 20100628
  Transmission Date: 20110219
  Serious: Yes (Other)
  Sender: FDA-Public Use
  Company Number: US-ASTRAZENECA-2010SE30116

PATIENT
  Age: 78 Year
  Sex: Male
  Weight: 93 kg

DRUGS (14)
  1. SYMBICORT [Suspect]
     Indication: CHRONIC OBSTRUCTIVE PULMONARY DISEASE
     Dosage: 320 UG BID
     Route: 055
     Dates: start: 20100606, end: 20100626
  2. SYMBICORT [Suspect]
     Indication: ASBESTOSIS
     Dosage: 320 UG BID
     Route: 055
     Dates: start: 20100606, end: 20100626
  3. SPIRIVA [Concomitant]
  4. FLUTICASONE [Concomitant]
  5. ATENOLOL [Concomitant]
  6. LOSARTAN POSTASSIUM [Concomitant]
  7. FEXOFENADINE [Concomitant]
  8. ROSUVASTATIN [Concomitant]
  9. ALBUTEROL [Concomitant]
  10. GLIPIZIDE [Concomitant]
  11. FUROSEMIDE [Concomitant]
  12. FERROUS SULFATE [Concomitant]
  13. GUAIFENESIN [Concomitant]
  14. CALCIUM CARBONATE [Concomitant]

REACTIONS (2)
  - ASBESTOSIS [None]
  - CHRONIC OBSTRUCTIVE PULMONARY DISEASE [None]
